FAERS Safety Report 7087319-3 (Version None)
Quarter: 2010Q4

REPORT INFORMATION
  Report Type: 
  Country: None (occurrence: None)
  Receive Date: 20101108
  Receipt Date: 20101027
  Transmission Date: 20110411
  Serious: Yes (Hospitalization)
  Sender: FDA-Public Use
  Company Number: US-BIOGENIDEC-2010BI015803

PATIENT
  Age: 60 Year
  Sex: Male
  Weight: 117 kg

DRUGS (1)
  1. TYSABRI [Suspect]
     Indication: MULTIPLE SCLEROSIS
     Route: 042
     Dates: start: 20090930

REACTIONS (9)
  - ASTHENIA [None]
  - DEEP VEIN THROMBOSIS [None]
  - EAR INFECTION [None]
  - FALL [None]
  - MUSCULOSKELETAL PAIN [None]
  - PHARYNGITIS [None]
  - SKIN HAEMORRHAGE [None]
  - SKIN LACERATION [None]
  - URINARY TRACT INFECTION [None]
